FAERS Safety Report 9756252 (Version 1)
Quarter: 2013Q4

REPORT INFORMATION
  Report Type: Spontaneous
  Country: US (occurrence: US)
  Receive Date: 20131213
  Receipt Date: 20131213
  Transmission Date: 20140711
  Serious: No
  Sender: FDA-Public Use
  Company Number: US-GLAXOSMITHKLINE-A1036542A

PATIENT
  Age: 68 Year
  Sex: Male
  Weight: 96 kg

DRUGS (4)
  1. EQUATE NTS 14MG, CLEAR [Suspect]
     Indication: EX-TOBACCO USER
     Dates: start: 20130726, end: 20130805
  2. LYRICA [Concomitant]
  3. BENTYL [Concomitant]
  4. METFORMIN [Concomitant]

REACTIONS (3)
  - Application site urticaria [Recovered/Resolved]
  - Application site discolouration [Recovered/Resolved]
  - Application site pruritus [Recovered/Resolved]
